FAERS Safety Report 15696668 (Version 1)
Quarter: 2018Q4

REPORT INFORMATION
  Report Type: Spontaneous
  Country: US (occurrence: US)
  Receive Date: 20181206
  Receipt Date: 20181206
  Transmission Date: 20190205
  Serious: Yes (Hospitalization)
  Sender: FDA-Public Use
  Company Number: US-ANTARES PHARMA, INC.-2018-SPO-ME-0568

PATIENT
  Age: 22 Year
  Weight: 72.2 kg

DRUGS (8)
  1. METHOTREXATE. [Suspect]
     Active Substance: METHOTREXATE
     Dosage: 15 MG, DAYS 1 AND 31 DURING  ON INTERIM MAINTENANCE 2
     Route: 037
     Dates: start: 29180611
  2. METHOTREXATE. [Suspect]
     Active Substance: METHOTREXATE
     Indication: LYMPHOCYTIC LEUKAEMIA
     Dosage: 189 MG, QD ON INTERIM MAINTENANCE 2, DAY 1
     Route: 042
     Dates: start: 20180611, end: 20180611
  3. METHOTREXATE. [Suspect]
     Active Substance: METHOTREXATE
     Dosage: 150 MG, QD ON INTERIM MAINTENANCE 2, DAY 21
     Route: 042
     Dates: start: 20180702, end: 20180702
  4. VINCRISTINE [Suspect]
     Active Substance: VINCRISTINE
     Indication: LYMPHOCYTIC LEUKAEMIA
     Dosage: 2 MG, DAYS 1, 11, 21, 32, 41
     Dates: start: 20180611
  5. METHOTREXATE. [Suspect]
     Active Substance: METHOTREXATE
     Dosage: 245 MG, QD ON INTERIM MAINTENANCE 2, DAY 31
     Route: 042
     Dates: start: 20180712, end: 20180712
  6. METHOTREXATE. [Suspect]
     Active Substance: METHOTREXATE
     Dosage: 340 MG, QD ON INTERIM MAINTENANCE 2, DAY 41
     Dates: start: 20180723
  7. RUXOLITINIB [Suspect]
     Active Substance: RUXOLITINIB
     Indication: LYMPHOCYTIC LEUKAEMIA
     Dosage: 75 MG, BID
     Route: 048
     Dates: start: 20171114, end: 20180803
  8. PEGASPARGASE [Suspect]
     Active Substance: PEGASPARGASE
     Indication: LYMPHOCYTIC LEUKAEMIA
     Dosage: 4275 UNITS, DAYS 2 AND 22 DURING INTERIM MAINTENANCE 2
     Route: 042
     Dates: start: 20180612

REACTIONS (2)
  - Pyrexia [Recovered/Resolved]
  - Viral infection [Recovered/Resolved]

NARRATIVE: CASE EVENT DATE: 20180806
